FAERS Safety Report 6710715-8 (Version None)
Quarter: 2010Q2

REPORT INFORMATION
  Report Type: 
  Country: None (occurrence: None)
  Receive Date: 20100504
  Receipt Date: 20100504
  Transmission Date: 20101027
  Serious: Yes (Hospitalization)
  Sender: FDA-Public Use
  Company Number: None

PATIENT
  Age: 2 Year
  Sex: Female
  Weight: 14.0615 kg

DRUGS (4)
  1. CHILDREN'S TYLENOL 80 MG PER 1/2 TEASPOON MCNEIL [Suspect]
     Indication: PYREXIA
     Dosage: 1 1/4 TEASPOON EVERY FOUR HOURS PO
     Route: 048
     Dates: start: 20100425, end: 20100428
  2. CHILDREN'S TYLENOL 80 MG PER 1/2 TEASPOON MCNEIL [Suspect]
     Indication: RHINORRHOEA
     Dosage: 1 1/4 TEASPOON EVERY FOUR HOURS PO
     Route: 048
     Dates: start: 20100425, end: 20100428
  3. CHILDREN'S MOTRIN [Suspect]
     Indication: PYREXIA
     Dosage: 1 1/4 TEASPOON EVERY SIX HOURS PO
     Route: 048
     Dates: start: 20100426, end: 20100428
  4. CHILDREN'S MOTRIN [Suspect]
     Indication: RHINORRHOEA
     Dosage: 1 1/4 TEASPOON EVERY SIX HOURS PO
     Route: 048
     Dates: start: 20100426, end: 20100428

REACTIONS (12)
  - ABNORMAL BEHAVIOUR [None]
  - DRUG HYPERSENSITIVITY [None]
  - ERYTHEMA INFECTIOSUM [None]
  - HYPERSENSITIVITY [None]
  - INSOMNIA [None]
  - OEDEMA PERIPHERAL [None]
  - PRODUCT QUALITY ISSUE [None]
  - RASH [None]
  - SLUGGISHNESS [None]
  - SWELLING FACE [None]
  - URTICARIA [None]
  - VIRAL RASH [None]
